FAERS Safety Report 5662536-5 (Version None)
Quarter: 2008Q1

REPORT INFORMATION
  Report Type: 
  Country: None (occurrence: None)
  Receive Date: 20080313
  Receipt Date: 20070921
  Transmission Date: 20080703
  Serious: No
  Sender: FDA-Public Use
  Company Number: US-BAYER-US-2007-035931

PATIENT
  Sex: Female

DRUGS (1)
  1. YAZ [Suspect]
     Dates: start: 20070716, end: 20070717

REACTIONS (2)
  - HYPERSENSITIVITY [None]
  - RASH [None]
